FAERS Safety Report 12170712 (Version 1)
Quarter: 2016Q1

REPORT INFORMATION
  Report Type: Spontaneous
  Country: US (occurrence: US)
  Receive Date: 20160311
  Receipt Date: 20160311
  Transmission Date: 20160526
  Serious: No
  Sender: FDA-Public Use
  Company Number: US-BAYER-2016-048532

PATIENT
  Age: 63 Year
  Sex: Male
  Weight: 106.58 kg

DRUGS (2)
  1. ALEVE [Suspect]
     Active Substance: NAPROXEN SODIUM
     Indication: HEADACHE
     Dosage: 1 DF, PRN
     Route: 061
  2. EXCEDRIN [Concomitant]
     Active Substance: ACETAMINOPHEN\ASPIRIN\CAFFEINE
     Dosage: UNK UNK, PRN

REACTIONS (3)
  - Therapeutic response unexpected [None]
  - Drug ineffective [None]
  - Therapeutic response unexpected [None]

NARRATIVE: CASE EVENT DATE: 20160309
